FAERS Safety Report 10881001 (Version 1)
Quarter: 2015Q1

REPORT INFORMATION
  Report Type: Spontaneous
  Country: US (occurrence: US)
  Receive Date: 20150303
  Receipt Date: 20150303
  Transmission Date: 20150721
  Serious: No
  Sender: FDA-Public Use
  Company Number: US-PFIZER INC-2015073627

PATIENT
  Sex: Female

DRUGS (3)
  1. NORVASC [Suspect]
     Active Substance: AMLODIPINE BESYLATE
  2. SINGULAIR [Suspect]
     Active Substance: MONTELUKAST SODIUM
  3. COREG [Suspect]
     Active Substance: CARVEDILOL

REACTIONS (1)
  - Drug hypersensitivity [Unknown]
